FAERS Safety Report 25631418 (Version 1)
Quarter: 2025Q3

REPORT INFORMATION
  Report Type: Spontaneous
  Country: US (occurrence: US)
  Receive Date: 20250801
  Receipt Date: 20250801
  Transmission Date: 20251020
  Serious: No
  Sender: ROCHE
  Company Number: US-ROCHE-10000349417

PATIENT
  Sex: Male

DRUGS (2)
  1. XOLAIR [Suspect]
     Active Substance: OMALIZUMAB
     Indication: Food allergy
     Dosage: STRENGTH: 300 MG/2ML
     Route: 058
     Dates: start: 202502
  2. OMNITROPE [Concomitant]
     Active Substance: SOMATROPIN

REACTIONS (5)
  - Feeling abnormal [Unknown]
  - Injection site pain [Unknown]
  - Injection site swelling [Recovered/Resolved]
  - Tremor [Unknown]
  - Chills [Unknown]
